FAERS Safety Report 9813225 (Version 1)
Quarter: 2014Q1

REPORT INFORMATION
  Report Type: Spontaneous
  Country: US (occurrence: None)
  Receive Date: 20140110
  Receipt Date: 20140110
  Transmission Date: 20141002
  Serious: Yes (Other)
  Sender: FDA-Public Use
  Company Number: None

PATIENT
  Age: 15 Year
  Sex: Male
  Weight: 44.45 kg

DRUGS (1)
  1. HYDROCORTISONE [Suspect]
     Indication: SUPPLEMENTATION THERAPY
     Dosage: 1 PILL
     Route: 048
     Dates: start: 20130916, end: 20131001

REACTIONS (2)
  - Drug ineffective [None]
  - Product quality issue [None]
